FAERS Safety Report 10405394 (Version 1)
Quarter: 2014Q3

REPORT INFORMATION
  Report Type: Spontaneous
  Country: FR (occurrence: None)
  Receive Date: 20140820
  Receipt Date: 20140820
  Transmission Date: 20150326
  Serious: Yes (Other)
  Sender: FDA-Public Use
  Company Number: IPC201408-000417

PATIENT
  Age: 56 Year
  Sex: Male

DRUGS (6)
  1. SITAGLIPTIN [Suspect]
     Active Substance: SITAGLIPTIN
     Dates: start: 2009
  2. FLURBIPROFEN. [Suspect]
     Active Substance: FLURBIPROFEN
  3. ATORVASTATIN [Suspect]
     Active Substance: ATORVASTATIN
  4. LISINOPRIL. [Suspect]
     Active Substance: LISINOPRIL
     Dates: start: 1995
  5. METFORMIN HYDROCHLORIDE. [Suspect]
     Active Substance: METFORMIN HYDROCHLORIDE
     Dates: start: 2003
  6. GLIBENCLAMIDE [Suspect]
     Active Substance: GLYBURIDE
     Dates: start: 2003

REACTIONS (2)
  - Seasonal allergy [None]
  - Angioedema [None]
